FAERS Safety Report 6243077-3 (Version None)
Quarter: 2009Q2

REPORT INFORMATION
  Report Type: 
  Country: None (occurrence: None)
  Receive Date: 20090622
  Receipt Date: 20090622
  Transmission Date: 20091009
  Serious: No
  Sender: FDA-Public Use
  Company Number: None

PATIENT
  Sex: Female
  Weight: 86.1834 kg

DRUGS (4)
  1. ZICAM NO-DRIP LUQUID NASAL GEL ZICAM [Suspect]
     Indication: COUGH
     Dosage: 1 INHALATION IN EACH NOSTRIL ONCE NASAL
     Route: 045
     Dates: start: 20080210, end: 20080215
  2. ZICAM NO-DRIP LUQUID NASAL GEL ZICAM [Suspect]
     Indication: NASOPHARYNGITIS
     Dosage: 1 INHALATION IN EACH NOSTRIL ONCE NASAL
     Route: 045
     Dates: start: 20080210, end: 20080215
  3. ZICAM NO-DRIP LUQUID NASAL GEL ZICAM [Suspect]
     Indication: RHINORRHOEA
     Dosage: 1 INHALATION IN EACH NOSTRIL ONCE NASAL
     Route: 045
     Dates: start: 20080210, end: 20080215
  4. ZICAM NO-DRIP LUQUID NASAL GEL ZICAM [Suspect]
     Indication: SNEEZING
     Dosage: 1 INHALATION IN EACH NOSTRIL ONCE NASAL
     Route: 045
     Dates: start: 20080210, end: 20080215

REACTIONS (4)
  - AGEUSIA [None]
  - ANOSMIA [None]
  - DYSGEUSIA [None]
  - HYPOSMIA [None]
